FAERS Safety Report 7715177-X (Version None)
Quarter: 2011Q3

REPORT INFORMATION
  Report Type: 
  Country: None (occurrence: None)
  Receive Date: 20110829
  Receipt Date: 20110818
  Transmission Date: 20111222
  Serious: Yes (Other)
  Sender: FDA-Public Use
  Company Number: PHHY2011FR42441

PATIENT
  Sex: Female
  Weight: 46 kg

DRUGS (7)
  1. ACETAMINOPHEN [Concomitant]
     Dosage: 2 DF, QD
  2. ORAL CONTRACEPTIVE NOS [Concomitant]
     Dosage: UNK
     Route: 048
  3. NEORAL [Suspect]
     Dosage: 10 MG PER DAY
  4. CARLIN [Concomitant]
     Dosage: 75/30 MCG
     Dates: start: 20110509
  5. NEORAL [Suspect]
     Dosage: 175 MG/DAY
  6. NEORAL [Suspect]
     Indication: PSORIASIS
     Dosage: 250 MG, QD
     Dates: start: 20110221, end: 20110504
  7. NEORAL [Suspect]
     Dosage: 70 MG, BID

REACTIONS (13)
  - ASTHENIA [None]
  - VOMITING [None]
  - DYSPEPSIA [None]
  - LIPIDS INCREASED [None]
  - CYTOLYTIC HEPATITIS [None]
  - FATIGUE [None]
  - PSORIASIS [None]
  - JAUNDICE [None]
  - NAUSEA [None]
  - MUSCULOSKELETAL STIFFNESS [None]
  - DECREASED APPETITE [None]
  - DYSAESTHESIA [None]
  - SPLENOMEGALY [None]
